FAERS Safety Report 4706131-0 (Version None)
Quarter: 2005Q2

REPORT INFORMATION
  Report Type: 
  Country: None (occurrence: None)
  Receive Date: 20050629
  Receipt Date: 20050617
  Transmission Date: 20051028
  Serious: Yes (Hospitalization)
  Sender: FDA-Public Use
  Company Number: 2005BI005721

PATIENT
  Age: 26 Year
  Sex: Female

DRUGS (6)
  1. AVONEX [Suspect]
     Dosage: 30 UG;Q;W; IM
     Route: 030
     Dates: start: 20040819
  2. TOPAMAX [Concomitant]
  3. DETROL [Concomitant]
  4. PROTONIX [Concomitant]
  5. PROVIGIL [Concomitant]
  6. MOM [Concomitant]

REACTIONS (4)
  - DISEASE PROGRESSION [None]
  - MULTIPLE SCLEROSIS [None]
  - NEUROLOGICAL SYMPTOM [None]
  - WEIGHT DECREASED [None]
